FAERS Safety Report 18653272 (Version 1)
Quarter: 2020Q4

REPORT INFORMATION
  Report Type: Report from Study
  Country: DE (occurrence: DE)
  Receive Date: 20201223
  Receipt Date: 20201223
  Transmission Date: 20210114
  Serious: Yes (Hospitalization, Other)
  Sender: FDA-Public Use
  Company Number: DE-GLAXOSMITHKLINE-DE2020GSK250235

PATIENT

DRUGS (1)
  1. BELIMUMAB [Suspect]
     Active Substance: BELIMUMAB
     Indication: SYSTEMIC LUPUS ERYTHEMATOSUS
     Dosage: 10 MG/KG, Z (ONE IN 4 WEEKS)
     Route: 042
     Dates: start: 20121219, end: 20150430

REACTIONS (1)
  - Bowen^s disease [Recovered/Resolved]

NARRATIVE: CASE EVENT DATE: 20150706
